FAERS Safety Report 17434571 (Version 1)
Quarter: 2020Q1

REPORT INFORMATION
  Report Type: Spontaneous
  Country: DE (occurrence: DE)
  Receive Date: 20200219
  Receipt Date: 20200219
  Transmission Date: 20200409
  Serious: Yes (Other)
  Sender: FDA-Public Use
  Company Number: DE-PFIZER INC-2020068643

PATIENT

DRUGS (2)
  1. CYTOTEC [Suspect]
     Active Substance: MISOPROSTOL
     Dosage: SINGLE DOSE
     Route: 064
     Dates: start: 20070901, end: 20070901
  2. CYTOTEC [Suspect]
     Active Substance: MISOPROSTOL
     Dosage: SINGLE DOSE
     Route: 064
     Dates: start: 20070831, end: 20070831

REACTIONS (4)
  - Foetal exposure during delivery [Unknown]
  - Foetal growth restriction [Recovered/Resolved]
  - Heart sounds abnormal [Recovered/Resolved]
  - Umbilical cord around neck [Recovered/Resolved]

NARRATIVE: CASE EVENT DATE: 20070831
